FAERS Safety Report 24444082 (Version 2)
Quarter: 2024Q4

REPORT INFORMATION
  Report Type: Report from Study
  Country: US (occurrence: US)
  Receive Date: 20241016
  Receipt Date: 20241017
  Transmission Date: 20250114
  Serious: No
  Sender: ROCHE
  Company Number: US-ROCHE-2567067

PATIENT
  Age: 69 Year
  Sex: Male
  Weight: 98.0 kg

DRUGS (11)
  1. RITUXAN [Suspect]
     Active Substance: RITUXIMAB
     Indication: Dermatomyositis
     Route: 041
  2. RITUXAN [Suspect]
     Active Substance: RITUXIMAB
     Indication: Raynaud^s phenomenon
  3. RITUXAN [Suspect]
     Active Substance: RITUXIMAB
     Indication: Periarthritis
  4. RITUXAN [Suspect]
     Active Substance: RITUXIMAB
     Indication: Hyperthyroidism
  5. RITUXAN [Suspect]
     Active Substance: RITUXIMAB
     Indication: Hypopharyngeal cancer
  6. RITUXAN [Suspect]
     Active Substance: RITUXIMAB
     Indication: Dermatomyositis
  7. PLAQUENIL [Concomitant]
     Active Substance: HYDROXYCHLOROQUINE SULFATE
  8. DELTASONE [Concomitant]
     Active Substance: PREDNISONE
  9. ELAVIL [Concomitant]
     Active Substance: AMITRIPTYLINE HYDROCHLORIDE
  10. PRILOSEC [Concomitant]
     Active Substance: OMEPRAZOLE MAGNESIUM
  11. SYNTHROID [Concomitant]
     Active Substance: LEVOTHYROXINE SODIUM

REACTIONS (2)
  - Off label use [Unknown]
  - No adverse event [Unknown]
